FAERS Safety Report 12602734 (Version 3)
Quarter: 2017Q1

REPORT INFORMATION
  Report Type: Report from Study
  Country: US (occurrence: US)
  Receive Date: 20160728
  Receipt Date: 20170111
  Transmission Date: 20170428
  Serious: Yes (Hospitalization)
  Sender: FDA-Public Use
  Company Number: US-EISAI MEDICAL RESEARCH-EC-2016-018125

PATIENT
  Age: 63 Year
  Sex: Female
  Weight: 109.8 kg

DRUGS (22)
  1. LENVATINIB [Suspect]
     Active Substance: LENVATINIB
     Route: 048
     Dates: start: 20160714, end: 20160723
  2. MORPHINE [Concomitant]
     Active Substance: MORPHINE
  3. POLYSACCHARIDE-IRON COMPLEX [Concomitant]
  4. FUROSEMIDE. [Concomitant]
     Active Substance: FUROSEMIDE
  5. MONTELUKAST [Concomitant]
     Active Substance: MONTELUKAST SODIUM
  6. LABETALOL [Concomitant]
     Active Substance: LABETALOL\LABETALOL HYDROCHLORIDE
  7. MIDAZOLAM [Concomitant]
     Active Substance: MIDAZOLAM HYDROCHLORIDE
     Dosage: 2 ML
     Route: 048
     Dates: start: 20160607, end: 20160623
  8. ALBUTEROL. [Concomitant]
     Active Substance: ALBUTEROL
  9. ASPIRIN. [Concomitant]
     Active Substance: ASPIRIN
  10. SENNA [Concomitant]
     Active Substance: SENNA LEAF\SENNOSIDES\SENNOSIDES A AND B
  11. VALSARTAN. [Concomitant]
     Active Substance: VALSARTAN
  12. ONDANSETRON [Concomitant]
     Active Substance: ONDANSETRON
  13. LENVATINIB [Suspect]
     Active Substance: LENVATINIB
     Indication: BREAST CANCER
     Route: 048
     Dates: start: 20160610, end: 20160706
  14. LOVENOX [Concomitant]
     Active Substance: ENOXAPARIN SODIUM
  15. DOCUSATE SODIUM. [Concomitant]
     Active Substance: DOCUSATE SODIUM
  16. SILVER SULFADIAZINE. [Concomitant]
     Active Substance: SILVER SULFADIAZINE
  17. BISACODYL. [Concomitant]
     Active Substance: BISACODYL
  18. FLUTICASONE. [Concomitant]
     Active Substance: FLUTICASONE
  19. METFORMIN [Concomitant]
     Active Substance: METFORMIN HYDROCHLORIDE
  20. LIDOCAINE SUSPENSION [Concomitant]
  21. ELIQUIS [Concomitant]
     Active Substance: APIXABAN
  22. POLYETHYLENE GLYCOL [Concomitant]
     Active Substance: POLYETHYLENE GLYCOLS

REACTIONS (2)
  - Breast discharge [Recovered/Resolved]
  - Chest pain [Recovered/Resolved]

NARRATIVE: CASE EVENT DATE: 20160624
